FAERS Safety Report 9432126 (Version 3)
Quarter: 2013Q4

REPORT INFORMATION
  Report Type: Spontaneous
  Country: US (occurrence: US)
  Receive Date: 20130731
  Receipt Date: 20131101
  Transmission Date: 20140711
  Serious: No
  Sender: FDA-Public Use
  Company Number: US-PFIZER INC-2013221364

PATIENT
  Age: 63 Year
  Sex: Female
  Weight: 58.96 kg

DRUGS (4)
  1. LYRICA [Suspect]
     Indication: FIBROMYALGIA
     Dosage: 100 MG, 2X/DAY
     Route: 048
  2. LYRICA [Suspect]
     Dosage: 50 MG, 2X/DAY
     Dates: end: 20130725
  3. LYRICA [Suspect]
     Dosage: 50 MG, 2X/DAY
     Dates: start: 20130729
  4. HYDROCODONE [Concomitant]
     Dosage: UNK

REACTIONS (9)
  - Fluid retention [Unknown]
  - Memory impairment [Unknown]
  - Anxiety [Unknown]
  - Weight increased [Unknown]
  - Somnolence [Unknown]
  - Insomnia [Unknown]
  - Feeling of relaxation [Unknown]
  - Increased appetite [Unknown]
  - Therapeutic response unexpected [Unknown]
